FAERS Safety Report 9331352 (Version 1)
Quarter: 2013Q2

REPORT INFORMATION
  Report Type: Spontaneous
  Country: US (occurrence: US)
  Receive Date: 20130605
  Receipt Date: 20130605
  Transmission Date: 20140414
  Serious: No
  Sender: FDA-Public Use
  Company Number: US-TARO-2013P1003129

PATIENT
  Age: 6 Year
  Sex: Female

DRUGS (1)
  1. CETIRIZINE HCL ORAL SOLUTION ALLERGY 1 MG/ML OTC [Suspect]
     Dates: start: 20130307

REACTIONS (1)
  - Drug effect incomplete [Not Recovered/Not Resolved]
